FAERS Safety Report 7850016-8 (Version None)
Quarter: 2011Q4

REPORT INFORMATION
  Report Type: 
  Country: None (occurrence: None)
  Receive Date: 20111021
  Receipt Date: 20111007
  Transmission Date: 20120403
  Serious: Yes (Life-Threatening, Hospitalization, Other)
  Sender: FDA-Public Use
  Company Number: FK201102181

PATIENT
  Age: 6 Year
  Sex: Male

DRUGS (2)
  1. IMMUNE GLOBULIN (HUMAN) [Suspect]
     Indication: IMMUNOGLOBULIN THERAPY
     Dosage: , INTRAVENOUS
     Route: 042
  2. METHYLPREDNISOLONE [Suspect]
     Indication: JUVENILE ARTHRITIS
     Dosage: , INTRAVENOUS
     Route: 042

REACTIONS (19)
  - NO THERAPEUTIC RESPONSE [None]
  - NEPHROPATHY [None]
  - HISTIOCYTOSIS HAEMATOPHAGIC [None]
  - RASH MACULAR [None]
  - CARDIOGENIC SHOCK [None]
  - DISSEMINATED INTRAVASCULAR COAGULATION [None]
  - SERUM FERRITIN INCREASED [None]
  - BLOOD ALBUMIN DECREASED [None]
  - MYOCARDITIS [None]
  - AZOTAEMIA [None]
  - BLOOD TRIGLYCERIDES INCREASED [None]
  - RED BLOOD CELL SEDIMENTATION RATE INCREASED [None]
  - HYPERTENSION [None]
  - C-REACTIVE PROTEIN INCREASED [None]
  - TACHYCARDIA [None]
  - CONVULSION [None]
  - POSTERIOR REVERSIBLE ENCEPHALOPATHY SYNDROME [None]
  - CARDIOMEGALY [None]
  - PYREXIA [None]
